FAERS Safety Report 6371106-5 (Version None)
Quarter: 2009Q3

REPORT INFORMATION
  Report Type: 
  Country: None (occurrence: None)
  Receive Date: 20090923
  Receipt Date: 20090918
  Transmission Date: 20100115
  Serious: Yes (Life-Threatening)
  Sender: FDA-Public Use
  Company Number: PHHY2009BR40153

PATIENT
  Sex: Female
  Weight: 55 kg

DRUGS (3)
  1. DIOVAN HCT [Suspect]
     Indication: HYPERTENSION
     Dosage: 01 TABLET (320/25 MG) IN THE MORNING
  2. VALIUM [Concomitant]
     Indication: NERVOUS SYSTEM DISORDER
     Dosage: 1 TABLET (10 MG)  AT NIGHT
     Route: 048
  3. SIMVASTATIN [Concomitant]
     Indication: BLOOD CHOLESTEROL INCREASED
     Dosage: 1 TABLET (10 MG) AT NIGHT
     Route: 048

REACTIONS (8)
  - BACK PAIN [None]
  - DIZZINESS [None]
  - FEELING ABNORMAL [None]
  - HEAD DISCOMFORT [None]
  - INFARCTION [None]
  - PARALYSIS [None]
  - SOMNOLENCE [None]
  - URINE OUTPUT DECREASED [None]
